FAERS Safety Report 23808055 (Version 1)
Quarter: 2024Q2

REPORT INFORMATION
  Report Type: Spontaneous
  Country: US (occurrence: US)
  Receive Date: 20240502
  Receipt Date: 20240502
  Transmission Date: 20240716
  Serious: No
  Sender: FDA-Public Use
  Company Number: US-ABBVIE-5735621

PATIENT
  Sex: Female

DRUGS (1)
  1. SKYRIZI [Suspect]
     Active Substance: RISANKIZUMAB-RZAA
     Indication: Crohn^s disease
     Route: 058
     Dates: start: 2022

REACTIONS (7)
  - Hypoaesthesia [Recovering/Resolving]
  - Injection site swelling [Recovered/Resolved]
  - Rash [Recovering/Resolving]
  - Dysstasia [Recovering/Resolving]
  - Paraesthesia [Not Recovered/Not Resolved]
  - Joint stiffness [Recovering/Resolving]
  - Swelling [Recovering/Resolving]

NARRATIVE: CASE EVENT DATE: 20240414
